FAERS Safety Report 14693768 (Version 2)
Quarter: 2018Q3

REPORT INFORMATION
  Report Type: Spontaneous
  Country: DZ (occurrence: DZ)
  Receive Date: 20180329
  Receipt Date: 20180702
  Transmission Date: 20181010
  Serious: Yes (Hospitalization)
  Sender: FDA-Public Use
  Company Number: DZ-MYLANLABS-2018M1021722

PATIENT
  Age: 13 Year
  Sex: Male
  Weight: 28 kg

DRUGS (15)
  1. CYSTAGON [Suspect]
     Active Substance: CYSTEAMINE BITARTRATE
     Indication: CYSTINOSIS
     Dosage: 1500 MG, QD
     Route: 048
     Dates: start: 2007, end: 20180310
  2. CYSTAGON [Suspect]
     Active Substance: CYSTEAMINE BITARTRATE
     Dosage: 4 G, QD
     Route: 048
  3. CYMEVAN [Concomitant]
     Active Substance: GANCICLOVIR
     Indication: PERICARDIAL EFFUSION
     Dosage: 80 MG, QD
     Route: 048
     Dates: start: 20180222, end: 20180308
  4. TRIATEC                            /00885601/ [Concomitant]
     Active Substance: RAMIPRIL
     Indication: HYPERTENSION
     Dosage: 2.5 MG, QD
     Route: 048
     Dates: start: 20071102
  5. CYMEVAN [Concomitant]
     Active Substance: GANCICLOVIR
     Indication: PLEURAL EFFUSION
  6. OMEPRAZOLE. [Concomitant]
     Active Substance: OMEPRAZOLE
     Indication: RENAL TRANSPLANT
  7. CELLCEPT [Concomitant]
     Active Substance: MYCOPHENOLATE MOFETIL\MYCOPHENOLATE MOFETIL HYDROCHLORIDE
     Indication: RENAL TRANSPLANT
     Dosage: 250 MG, QD
     Route: 048
     Dates: start: 20111211
  8. SODIUM BICARBONATE. [Concomitant]
     Active Substance: SODIUM BICARBONATE
     Indication: RENAL TUBULAR ACIDOSIS
     Dosage: 160 MG, QD
     Route: 048
     Dates: start: 20171102
  9. OFLOCET [Concomitant]
     Active Substance: OFLOXACIN
     Indication: PROPHYLAXIS
     Dosage: 200 MG, QD
     Route: 048
     Dates: start: 20180222
  10. PROGRAF [Concomitant]
     Active Substance: TACROLIMUS\TACROLIMUS ANHYDROUS
     Indication: RENAL TRANSPLANT
     Dosage: 4.5 MG, QD
     Route: 048
     Dates: start: 20121211
  11. AMLOR [Concomitant]
     Active Substance: AMLODIPINE BESYLATE
     Indication: HYPERTENSION
     Dosage: 10 MG, QD
     Route: 048
     Dates: start: 20180102
  12. OMEPRAZOLE. [Concomitant]
     Active Substance: OMEPRAZOLE
     Indication: CYSTINOSIS
     Dosage: 20 MG, QD
     Route: 048
     Dates: start: 20111211, end: 20180314
  13. PREDNISONE. [Concomitant]
     Active Substance: PREDNISONE
     Indication: RENAL TRANSPLANT
     Dosage: 5 MG, QD
     Route: 048
     Dates: start: 20111211
  14. RHZE [Concomitant]
     Indication: TUBERCULOSIS
     Dosage: 2075 MG, QD
     Route: 048
     Dates: start: 20180223
  15. FLAGYL [Concomitant]
     Active Substance: METRONIDAZOLE\METRONIDAZOLE HYDROCHLORIDE
     Indication: CHOLECYSTITIS
     Dosage: 500 MG, QD
     Route: 048
     Dates: start: 20180219, end: 20180308

REACTIONS (5)
  - Overdose [Unknown]
  - Thinking abnormal [Recovered/Resolved]
  - Agitation [Recovered/Resolved]
  - Anxiety disorder [Recovered/Resolved]
  - Social fear [Recovered/Resolved]

NARRATIVE: CASE EVENT DATE: 20180309
